FAERS Safety Report 7301495-6 (Version None)
Quarter: 2011Q1

REPORT INFORMATION
  Report Type: 
  Country: None (occurrence: None)
  Receive Date: 20110218
  Receipt Date: 20100810
  Transmission Date: 20110831
  Serious: Yes (Other)
  Sender: FDA-Public Use
  Company Number: US-BRISTOL-MYERS SQUIBB COMPANY-15224116

PATIENT
  Age: 33 Year
  Sex: Female

DRUGS (2)
  1. PRILOSEC [Concomitant]
  2. KENALOG [Suspect]
     Indication: HISTOPLASMOSIS
     Dosage: 1 DF = 0.05CC OF KENALOG 40MG/ML
     Route: 047
     Dates: start: 20100727

REACTIONS (5)
  - VISION BLURRED [None]
  - EYE PAIN [None]
  - EYE SWELLING [None]
  - PHOTOSENSITIVITY REACTION [None]
  - EYE PRURITUS [None]
